FAERS Safety Report 21371540 (Version 1)
Quarter: 2022Q3

REPORT INFORMATION
  Report Type: Spontaneous
  Country: BR (occurrence: None)
  Receive Date: 20220923
  Receipt Date: 20220923
  Transmission Date: 20221027
  Serious: Yes (Other)
  Sender: FDA-Public Use
  Company Number: 2022A320672

PATIENT
  Age: 31 Year
  Sex: Male

DRUGS (5)
  1. QUETIAPINE [Suspect]
     Active Substance: QUETIAPINE
     Indication: Obsessive-compulsive disorder
     Dosage: 100.0MG UNKNOWN
     Route: 048
  2. FLUVOXAMINE [Suspect]
     Active Substance: FLUVOXAMINE
     Indication: Obsessive-compulsive disorder
     Dosage: 100.0MG UNKNOWN
     Route: 065
  3. CLOMIPRAMINE [Suspect]
     Active Substance: CLOMIPRAMINE
     Indication: Obsessive-compulsive disorder
     Dosage: 112.5MG UNKNOWN
     Route: 065
  4. PREGABALIN [Suspect]
     Active Substance: PREGABALIN
     Indication: Obsessive-compulsive disorder
     Route: 065
  5. TRAMADOL [Suspect]
     Active Substance: TRAMADOL
     Indication: Obsessive-compulsive disorder
     Route: 065

REACTIONS (3)
  - Serotonin syndrome [Unknown]
  - Rhabdomyolysis [Unknown]
  - Off label use [Unknown]
